FAERS Safety Report 5256955-9 (Version None)
Quarter: 2007Q1

REPORT INFORMATION
  Report Type: 
  Country: None (occurrence: None)
  Receive Date: 20070305
  Receipt Date: 20070305
  Transmission Date: 20070707
  Serious: Yes (Other)
  Sender: FDA-Public Use
  Company Number: None

PATIENT
  Age: 43 Year
  Sex: Male
  Weight: 95.2554 kg

DRUGS (11)
  1. AFRIN [Suspect]
     Indication: NASAL CONGESTION
     Dosage: QH; NAS
     Route: 045
     Dates: start: 19780601
  2. AFRIN [Suspect]
     Indication: NASOPHARYNGITIS
     Dosage: QH; NAS
     Route: 045
     Dates: start: 19780601
  3. LANOXIN [Concomitant]
  4. CARDIZEM [Concomitant]
  5. VITAMINS [Concomitant]
  6. PAROXETINE HCL [Concomitant]
  7. VIOXX [Concomitant]
  8. SINGULAIR [Concomitant]
  9. CELEBREX [Concomitant]
  10. TRAMADOL HCL [Concomitant]
  11. LEXAPRO [Concomitant]

REACTIONS (7)
  - ANXIETY [None]
  - DRUG DEPENDENCE [None]
  - INTENTIONAL DRUG MISUSE [None]
  - NASAL CONGESTION [None]
  - NASOPHARYNGITIS [None]
  - REBOUND EFFECT [None]
  - SWELLING [None]
